FAERS Safety Report 9705874 (Version 2)
Quarter: 2013Q4

REPORT INFORMATION
  Report Type: Report from Study
  Country: JP (occurrence: JP)
  Receive Date: 20131122
  Receipt Date: 20131219
  Transmission Date: 20140711
  Serious: Yes (Other)
  Sender: FDA-Public Use
  Company Number: JP-TAKEDA-2013TJP003018

PATIENT
  Age: 61 Year
  Sex: Male
  Weight: 95 kg

DRUGS (14)
  1. ALOGLIPTIN [Suspect]
     Indication: TYPE 2 DIABETES MELLITUS
     Dosage: 25 MG, QD
     Route: 048
     Dates: start: 20120314
  2. ACTOS [Concomitant]
     Indication: TYPE 2 DIABETES MELLITUS
     Dosage: 15 MG, 1 DAYS
     Route: 048
  3. BLOPRESS [Concomitant]
     Dosage: UNK
     Route: 048
  4. TAKEPRON [Concomitant]
     Dosage: UNK
     Route: 048
  5. BAYASPIRIN [Concomitant]
     Dosage: 200 MG, 1 DAYS
     Route: 048
  6. CRESTOR [Concomitant]
     Dosage: UNK
     Route: 048
  7. SIGMART [Concomitant]
     Dosage: 15 MG, 1 DAYS
     Route: 048
  8. ARTIST [Concomitant]
     Dosage: UNK
     Route: 048
  9. PLAVIX [Concomitant]
     Dosage: UNK
     Route: 048
  10. DOGMATYL [Concomitant]
     Dosage: 100 MG, 1 DAYS
     Route: 048
  11. DEPAS [Concomitant]
     Dosage: UNK
     Route: 048
  12. MAGMITT [Concomitant]
     Dosage: 1320 MG, 1 DAYS
     Route: 048
  13. FRANDOL TAPE [Concomitant]
     Dosage: UNK
     Route: 062
  14. BUP-4 [Concomitant]
     Dosage: UNK
     Route: 048

REACTIONS (2)
  - Myocardial infarction [Recovered/Resolved]
  - Condition aggravated [Recovered/Resolved]
